FAERS Safety Report 4583327-2 (Version None)
Quarter: 2005Q1

REPORT INFORMATION
  Report Type: 
  Country: None (occurrence: None)
  Receive Date: 20050125
  Receipt Date: 20041116
  Transmission Date: 20050727
  Serious: No
  Sender: FDA-Public Use
  Company Number: USA040155884

PATIENT
  Age: 73 Year
  Sex: Male
  Weight: 72 kg

DRUGS (8)
  1. FORTEO [Suspect]
     Indication: OSTEOPOROSIS
     Dosage: 20 UG DAY
     Dates: start: 20031001, end: 20040501
  2. PREDNISONE [Concomitant]
  3. CALCIUM CITRATE [Concomitant]
  4. FOSAMAX [Concomitant]
  5. VITAMIN D [Concomitant]
  6. LEVOTHYROXINE [Concomitant]
  7. FOLIC ACID [Concomitant]
  8. ERGOCALCIFEROL [Concomitant]

REACTIONS (7)
  - BLOOD CALCIUM DECREASED [None]
  - BLOOD THYROID STIMULATING HORMONE DECREASED [None]
  - BONE PAIN [None]
  - DIFFICULTY IN WALKING [None]
  - FATIGUE [None]
  - MUSCULAR WEAKNESS [None]
  - PRURITUS GENERALISED [None]
